FAERS Safety Report 4352010-0 (Version None)
Quarter: 2004Q2

REPORT INFORMATION
  Report Type: 
  Country: None (occurrence: None)
  Receive Date: 20040429
  Receipt Date: 20040217
  Transmission Date: 20050107
  Serious: Yes (Life-Threatening)
  Sender: FDA-Public Use
  Company Number: 2004-BP-01173RO

PATIENT

DRUGS (2)
  1. MIDAZOLAM HYDROCHLORIDE [Suspect]
     Indication: SEDATION
     Dates: start: 20030101
  2. NEMBUTAL [Suspect]
     Indication: SEDATION
     Dosage: IV
     Route: 042

REACTIONS (2)
  - APNOEA [None]
  - RESPIRATORY ARREST [None]
